FAERS Safety Report 26172074 (Version 1)
Quarter: 2025Q4

REPORT INFORMATION
  Report Type: Spontaneous
  Country: CN (occurrence: CN)
  Receive Date: 20251217
  Receipt Date: 20251217
  Transmission Date: 20260118
  Serious: Yes (Hospitalization, Other)
  Sender: Haleon PLC
  Company Number: CN-HALEON-2279691

PATIENT
  Age: 81 Year
  Sex: Female
  Weight: 50 kg

DRUGS (2)
  1. VOLTAREN [Suspect]
     Active Substance: DICLOFENAC SODIUM
     Indication: Analgesic therapy
     Dates: start: 20251201, end: 20251208
  2. RIVAROXABAN [Suspect]
     Active Substance: RIVAROXABAN
     Indication: Anticoagulant therapy
     Dates: start: 20210609, end: 20251208

REACTIONS (4)
  - Lower gastrointestinal haemorrhage [Recovering/Resolving]
  - Dizziness [Recovered/Resolved]
  - Asthenia [Recovered/Resolved]
  - Haematochezia [Recovered/Resolved]

NARRATIVE: CASE EVENT DATE: 20251208
